FAERS Safety Report 13504694 (Version 1)
Quarter: 2017Q2

REPORT INFORMATION
  Report Type: Spontaneous
  Country: US (occurrence: US)
  Receive Date: 20170502
  Receipt Date: 20170502
  Transmission Date: 20170830
  Serious: No
  Sender: FDA-Public Use
  Company Number: US-IMPAX LABORATORIES, INC-2017-IPXL-00112

PATIENT
  Age: 69 Year
  Sex: Male
  Weight: 98 kg

DRUGS (8)
  1. RYTARY [Suspect]
     Active Substance: CARBIDOPA\LEVODOPA
     Indication: MUSCLE SPASMS
  2. SINEMET [Concomitant]
     Active Substance: CARBIDOPA\LEVODOPA
     Indication: PRODUCT USED FOR UNKNOWN INDICATION
     Dosage: 1 TABLET, 5 /DAY
     Route: 065
  3. RYTARY [Suspect]
     Active Substance: CARBIDOPA\LEVODOPA
     Indication: PARKINSON^S DISEASE
  4. FUROSEMIDE. [Concomitant]
     Active Substance: FUROSEMIDE
     Indication: DIURETIC THERAPY
     Dosage: 40 MG, 2 /DAY
     Route: 065
  5. ASACOL HD [Concomitant]
     Active Substance: MESALAMINE
     Indication: COLITIS ULCERATIVE
     Dosage: 2 PILLS, 1 /DAY
     Route: 065
  6. ATENOLOL. [Concomitant]
     Active Substance: ATENOLOL
     Indication: CARDIAC DISORDER
     Dosage: 25 MG; 1 TABLET, 2 /DAY
     Route: 065
  7. CLOPIDOGREL [Concomitant]
     Active Substance: CLOPIDOGREL BISULFATE
     Indication: BLOOD DISORDER
     Dosage: 75 MG, ONE TABLET 1 /DAY
     Route: 065
  8. RYTARY [Suspect]
     Active Substance: CARBIDOPA\LEVODOPA
     Indication: MUSCLE SPASMS
     Dosage: 2 CAPSULES, 4 /DAY
     Route: 048
     Dates: start: 201611, end: 201612

REACTIONS (1)
  - Drug ineffective for unapproved indication [Unknown]
